FAERS Safety Report 7249895-7 (Version None)
Quarter: 2011Q1

REPORT INFORMATION
  Report Type: 
  Country: None (occurrence: None)
  Receive Date: 20110128
  Receipt Date: 20100714
  Transmission Date: 20110831
  Serious: No
  Sender: FDA-Public Use
  Company Number: A0875776A

PATIENT
  Age: 63 Year
  Sex: Male

DRUGS (4)
  1. WELLBUTRIN XL [Suspect]
     Indication: DEPRESSION
     Dosage: 150MG PER DAY
     Route: 048
     Dates: start: 20100101
  2. PROCARDIA XL [Concomitant]
     Dosage: 90MG PER DAY
  3. VALSARTAN [Concomitant]
     Dosage: 3MG PER DAY
  4. HYDROCHLOROTHIAZIDE [Concomitant]
     Dosage: 12.5MG PER DAY

REACTIONS (3)
  - PRODUCT QUALITY ISSUE [None]
  - DRUG INEFFECTIVE [None]
  - INSOMNIA [None]
